FAERS Safety Report 4652700-6 (Version None)
Quarter: 2005Q2

REPORT INFORMATION
  Report Type: 
  Country: None (occurrence: None)
  Receive Date: 20050502
  Receipt Date: 20050419
  Transmission Date: 20051028
  Serious: Yes (Hospitalization)
  Sender: FDA-Public Use
  Company Number: HQWYE810707APR05

PATIENT
  Age: 24 Year
  Sex: Female

DRUGS (4)
  1. PROGRAF, CONTROL FOR SIROLIMUS (TACROLIMUS, CONTROL FOR SIROLIMUS, UNS [Suspect]
     Indication: PROPHYLAXIS AGAINST TRANSPLANT REJECTION
     Dosage: 8 MG, ORAL
     Route: 048
     Dates: start: 20050318, end: 20050418
  2. CELLCEPT [Suspect]
     Indication: PROPHYLAXIS AGAINST TRANSPLANT REJECTION
     Dosage: 2000 MG, ORAL
     Route: 048
     Dates: start: 20050318
  3. PREDNISONE [Suspect]
     Indication: PROPHYLAXIS AGAINST TRANSPLANT REJECTION
     Dosage: 20 MG, ORAL
     Route: 048
  4. ZENAPAX [Suspect]
     Indication: PROPHYLAXIS AGAINST TRANSPLANT REJECTION
     Dosage: 2 X 100MG, ORAL
     Route: 048

REACTIONS (2)
  - DRUG TOXICITY [None]
  - SINUSITIS [None]
